FAERS Safety Report 10066371 (Version 3)
Quarter: 2014Q2

REPORT INFORMATION
  Report Type: Spontaneous
  Country: US (occurrence: US)
  Receive Date: 20140408
  Receipt Date: 20140610
  Transmission Date: 20141212
  Serious: Yes (Death, Congenital Anomaly, Other)
  Sender: FDA-Public Use
  Company Number: US-TEVA-473274USA

PATIENT
  Sex: Female

DRUGS (2)
  1. FENTORA [Suspect]
     Indication: OFF LABEL USE
     Route: 002
  2. FENTORA [Suspect]
     Indication: AICARDI^S SYNDROME

REACTIONS (2)
  - Aicardi^s syndrome [Fatal]
  - Off label use [Unknown]
